FAERS Safety Report 4883527-8 (Version None)
Quarter: 2006Q1

REPORT INFORMATION
  Report Type: 
  Country: None (occurrence: None)
  Receive Date: 20060118
  Receipt Date: 20050520
  Transmission Date: 20060701
  Serious: Yes (Other)
  Sender: FDA-Public Use
  Company Number: GB-MERCK-0505GBR00158

PATIENT
  Age: 59 Year
  Sex: Male
  Weight: 49 kg

DRUGS (9)
  1. ZOCOR [Suspect]
     Indication: BLOOD CHOLESTEROL INCREASED
     Route: 048
     Dates: start: 20041202, end: 20050414
  2. FUSIDATE SODIUM [Suspect]
     Indication: STAPHYLOCOCCAL INFECTION
     Route: 048
     Dates: start: 20050331, end: 20050414
  3. ASPIRIN [Concomitant]
     Route: 048
  4. GABAPENTIN [Concomitant]
     Indication: NEUROPATHY
     Route: 048
  5. RAMIPRIL [Concomitant]
     Route: 048
  6. GLICLAZIDE [Concomitant]
     Route: 048
  7. GENTAMICIN [Concomitant]
     Route: 042
  8. ENOXAPARIN SODIUM [Concomitant]
     Route: 058
  9. METRONIDAZOLE [Concomitant]
     Route: 048
     Dates: end: 20050414

REACTIONS (4)
  - ASTHENIA [None]
  - BLOOD CREATINE PHOSPHOKINASE INCREASED [None]
  - MYOPATHY [None]
  - PAIN IN EXTREMITY [None]
